FAERS Safety Report 10965987 (Version 1)
Quarter: 2015Q1

REPORT INFORMATION
  Report Type: Report from Study
  Country: GB (occurrence: GB)
  Receive Date: 20150330
  Receipt Date: 20150330
  Transmission Date: 20150721
  Serious: Yes (Death, Hospitalization)
  Sender: FDA-Public Use
  Company Number: GB-CELGENE-167-21880-09060929

PATIENT
  Age: 72 Year
  Sex: Male
  Weight: 70.3 kg

DRUGS (1)
  1. REVLIMID [Suspect]
     Active Substance: LENALIDOMIDE
     Indication: MANTLE CELL LYMPHOMA
     Dosage: 25 MILLIGRAM
     Route: 048
     Dates: end: 20090607

REACTIONS (7)
  - Decreased appetite [Recovered/Resolved]
  - Respiratory distress [Fatal]
  - Cough [Recovered/Resolved]
  - Pleural effusion [Fatal]
  - Stridor [Fatal]
  - Diarrhoea [Recovered/Resolved]
  - Abdominal pain [Recovered/Resolved]

NARRATIVE: CASE EVENT DATE: 20090608
